FAERS Safety Report 16189131 (Version 1)
Quarter: 2019Q2

REPORT INFORMATION
  Report Type: Spontaneous
  Country: US (occurrence: US)
  Receive Date: 20190411
  Receipt Date: 20190411
  Transmission Date: 20190711
  Serious: Yes (Disabling)
  Sender: FDA-Public Use
  Company Number: None

PATIENT
  Age: 32 Year
  Sex: Male

DRUGS (2)
  1. DICLOFENAC SODIUM 75 MG [Concomitant]
     Active Substance: DICLOFENAC SODIUM
  2. HUMIRA [Suspect]
     Active Substance: ADALIMUMAB
     Indication: PSORIATIC ARTHROPATHY
     Dosage: ?          OTHER FREQUENCY:EVERY OTHER WEEK;?
     Route: 058
     Dates: end: 20180731

REACTIONS (4)
  - Motor dysfunction [None]
  - Vertigo [None]
  - Demyelination [None]
  - Blindness transient [None]

NARRATIVE: CASE EVENT DATE: 20190411
